FAERS Safety Report 8102922-7 (Version None)
Quarter: 2012Q1

REPORT INFORMATION
  Report Type: 
  Country: None (occurrence: None)
  Receive Date: 20120201
  Receipt Date: 20120117
  Transmission Date: 20120608
  Serious: Yes (Other)
  Sender: FDA-Public Use
  Company Number: US-COVIDIEN/TYCO HEALTHCARE/MALLINCKRODT-T201200463

PATIENT
  Sex: Female

DRUGS (2)
  1. INDERAL [Suspect]
     Dosage: UNK
     Dates: end: 19900101
  2. PAMELOR [Suspect]
     Dosage: UNK
     Dates: end: 19900101

REACTIONS (4)
  - HYPERSENSITIVITY [None]
  - POOR PERIPHERAL CIRCULATION [None]
  - DRUG INTERACTION [None]
  - LOSS OF CONSCIOUSNESS [None]
